FAERS Safety Report 12504231 (Version 1)
Quarter: 2016Q2

REPORT INFORMATION
  Report Type: Spontaneous
  Country: CH (occurrence: CH)
  Receive Date: 20160628
  Receipt Date: 20160628
  Transmission Date: 20160815
  Serious: Yes (Hospitalization, Other)
  Sender: FDA-Public Use
  Company Number: CH-TEVA-669589ISR

PATIENT
  Age: 68 Year
  Sex: Female

DRUGS (1)
  1. PANTOPRAZOLE [Suspect]
     Active Substance: PANTOPRAZOLE SODIUM
     Indication: PRODUCT USED FOR UNKNOWN INDICATION
     Dosage: STRENGTH AND DOSE UNKNOWN
     Route: 065

REACTIONS (12)
  - General physical health deterioration [Unknown]
  - Hypomagnesaemia [Recovered/Resolved]
  - Normochromic normocytic anaemia [Unknown]
  - Electrocardiogram QT prolonged [Unknown]
  - Hallucination, auditory [Recovered/Resolved]
  - Orthostatic intolerance [Recovered/Resolved]
  - Hypokalaemia [Unknown]
  - Hallucination, visual [Recovered/Resolved]
  - Nystagmus [Recovered/Resolved]
  - Ventricular extrasystoles [Unknown]
  - Disorientation [Recovered/Resolved]
  - Tremor [Recovered/Resolved]
